FAERS Safety Report 4592195-4 (Version None)
Quarter: 2005Q1

REPORT INFORMATION
  Report Type: 
  Country: None (occurrence: None)
  Receive Date: 20050228
  Receipt Date: 20050128
  Transmission Date: 20050727
  Serious: Yes (Death, Hospitalization)
  Sender: FDA-Public Use
  Company Number: NO-RB-1290-2005

PATIENT
  Sex: Male

DRUGS (9)
  1. BUPRENORPHINE HCL [Suspect]
     Indication: DRUG DEPENDENCE
     Route: 060
     Dates: start: 20040226, end: 20040918
  2. BUPRENORPHINE HCL [Suspect]
     Dosage: UNKNOWN
     Route: 060
     Dates: end: 20040201
  3. PIROXICAM [Suspect]
     Indication: BACK PAIN
     Route: 065
     Dates: start: 20040916, end: 20040918
  4. OXAZEPAM [Concomitant]
     Indication: DRUG USE FOR UNKNOWN INDICATION
     Dosage: UNKNOWN DOSAGE
     Route: 065
  5. CLONAZEPAM [Concomitant]
     Indication: DRUG USE FOR UNKNOWN INDICATION
     Dosage: UNKNOWN DOSAGE
     Route: 065
  6. DIAZEPAM [Concomitant]
     Indication: DRUG USE FOR UNKNOWN INDICATION
     Dosage: UNKNOWN DOSAGE
     Route: 065
  7. MEDICINALPRODUCT NOT SPECIFIED BY SENDER [Concomitant]
     Indication: DRUG USE FOR UNKNOWN INDICATION
     Dosage: UNKNOWN DOSAGE
     Route: 065
  8. TRIMIPRAMINE [Concomitant]
     Indication: SLEEP DISORDER
     Route: 065
     Dates: start: 20040601, end: 20040918
  9. LEVOMEPROMAZINE [Concomitant]
     Indication: SLEEP DISORDER
     Route: 065
     Dates: start: 20040601, end: 20040918

REACTIONS (12)
  - ASPIRATION [None]
  - BACK PAIN [None]
  - HEPATIC CIRRHOSIS [None]
  - HEPATIC FAILURE [None]
  - HEPATIC NECROSIS [None]
  - HEPATITIS TOXIC [None]
  - INFLUENZA LIKE ILLNESS [None]
  - OESOPHAGEAL HAEMORRHAGE [None]
  - PORTAL HYPERTENSION [None]
  - RESPIRATORY TRACT INFECTION [None]
  - SLEEP DISORDER [None]
  - VARICES OESOPHAGEAL [None]
